FAERS Safety Report 6716012-9 (Version None)
Quarter: 2010Q2

REPORT INFORMATION
  Report Type: 
  Country: None (occurrence: None)
  Receive Date: 20100506
  Receipt Date: 20100506
  Transmission Date: 20101027
  Serious: Yes (Other)
  Sender: FDA-Public Use
  Company Number: None

PATIENT
  Weight: 100.6985 kg

DRUGS (3)
  1. RIBAPAK 600 / 600MG TABS THREE RIVERS [Suspect]
     Indication: HEPATITIS C
     Dosage: 1200MG DAILY PO
     Route: 048
     Dates: start: 20100422, end: 20100501
  2. RIBAVIRIN [Suspect]
     Dosage: 200MG DAILY PO
     Route: 048
     Dates: start: 20100422, end: 20100501
  3. PEG-INTRON [Concomitant]

REACTIONS (1)
  - INCORRECT DOSE ADMINISTERED [None]
